FAERS Safety Report 9859709 (Version 2)
Quarter: 2014Q1

REPORT INFORMATION
  Report Type: Report from Study
  Country: None (occurrence: NZ)
  Receive Date: 20140131
  Receipt Date: 20140321
  Transmission Date: 20141002
  Serious: Yes (Death, Other)
  Sender: FDA-Public Use
  Company Number: PHHY2014NZ011844

PATIENT
  Age: 70 Year
  Sex: Female

DRUGS (5)
  1. CLOZARIL [Suspect]
     Indication: MAJOR DEPRESSION
     Dosage: 125 MG, UNK
     Dates: start: 20131021
  2. MIRTAZAPINE [Concomitant]
     Indication: DEPRESSION
     Dosage: 30 MG, UNK
     Route: 048
     Dates: start: 201306
  3. DIAZEPAM [Concomitant]
     Indication: ANXIETY
     Dosage: 1.5MG IN MORNING AND 2MG IN NIGHT, UNK
     Route: 048
     Dates: start: 201306
  4. PARACETAMOL [Concomitant]
     Indication: PAIN
     Dosage: 500 MG, QD
     Route: 048
     Dates: start: 201306
  5. LAXSOL [Concomitant]
     Indication: CONSTIPATION
     Dosage: UNK UKN, UNK
     Dates: start: 201306

REACTIONS (4)
  - Sudden death [Fatal]
  - Loss of consciousness [Unknown]
  - Circulatory collapse [Unknown]
  - Choking [Unknown]
